FAERS Safety Report 24145377 (Version 1)
Quarter: 2024Q3

REPORT INFORMATION
  Report Type: Spontaneous
  Country: CN (occurrence: CN)
  Receive Date: 20240729
  Receipt Date: 20240729
  Transmission Date: 20241016
  Serious: Yes (Other)
  Sender: ALCON
  Company Number: CN-ALCON LABORATORIES-ALC2024CN003513

PATIENT
  Age: 56 Year
  Sex: Male
  Weight: 81 kg

DRUGS (1)
  1. FLUORESCEIN SODIUM [Suspect]
     Active Substance: FLUORESCEIN SODIUM
     Indication: Angiogram retina
     Dosage: 0.050 ML, QD
     Route: 042
     Dates: start: 20240719, end: 20240719

REACTIONS (2)
  - Rash [Recovered/Resolved]
  - Pruritus [Recovered/Resolved]

NARRATIVE: CASE EVENT DATE: 20240719
